FAERS Safety Report 5481706-2 (Version None)
Quarter: 2007Q3

REPORT INFORMATION
  Report Type: 
  Country: None (occurrence: None)
  Receive Date: 20070917
  Receipt Date: 20070222
  Transmission Date: 20080115
  Serious: Yes (Death)
  Sender: FDA-Public Use
  Company Number: S07-USA-00841-01

PATIENT

DRUGS (1)
  1. CELEXA [Suspect]

REACTIONS (1)
  - OVERDOSE [None]
